FAERS Safety Report 26112074 (Version 1)
Quarter: 2025Q4

REPORT INFORMATION
  Report Type: Spontaneous
  Country: US (occurrence: US)
  Receive Date: 20251202
  Receipt Date: 20251202
  Transmission Date: 20260117
  Serious: Yes (Death, Other)
  Sender: CHEPLAPHARM
  Company Number: US-CHEPLA-2025013526

PATIENT
  Age: 60 Year
  Sex: Male
  Weight: 65.699 kg

DRUGS (11)
  1. OLANZAPINE [Suspect]
     Active Substance: OLANZAPINE
     Indication: Nausea
     Dosage: AS NECESSARY
     Route: 048
     Dates: start: 20250605
  2. FULVESTRANT [Suspect]
     Active Substance: FULVESTRANT
  3. RIBOCICLIB [Suspect]
     Active Substance: RIBOCICLIB
  4. PALBOCICLIB [Suspect]
     Active Substance: PALBOCICLIB
  5. MORPHINE [Concomitant]
     Active Substance: MORPHINE
     Indication: Back pain
     Route: 048
     Dates: start: 20250731
  6. COMPAZINE [Concomitant]
     Active Substance: PROCHLORPERAZINE MALEATE
     Indication: Nausea
     Dosage: AS NECESSARY
     Route: 048
     Dates: start: 20250731
  7. ONDANSETRON [Concomitant]
     Active Substance: ONDANSETRON
     Indication: Vomiting
     Dosage: AS NECESSARY
     Route: 048
     Dates: start: 20250425
  8. TESSALON [Concomitant]
     Active Substance: BENZONATATE
     Indication: Cough
     Dosage: AS NECESSARY
     Route: 048
     Dates: start: 20250213
  9. Hydrocodone-Homatropine [Concomitant]
     Indication: Cough
     Dosage: 5-1.5 MG
     Route: 048
     Dates: start: 20250410
  10. LOMOTIL [Concomitant]
     Active Substance: ATROPINE SULFATE\DIPHENOXYLATE HYDROCHLORIDE
     Indication: Diarrhoea
     Dosage: 2.5-0.025, MILLIGRAM
     Route: 048
     Dates: start: 20250508
  11. GABAPENTIN [Concomitant]
     Active Substance: GABAPENTIN
     Indication: Neuropathy peripheral
     Dosage: DAILY?DAILY DOSE: 300 MILLIGRAM
     Route: 048
     Dates: start: 20250508

REACTIONS (4)
  - Disease progression [Fatal]
  - Pneumonia [Not Recovered/Not Resolved]
  - Embolism [Not Recovered/Not Resolved]
  - Off label use [Not Recovered/Not Resolved]

NARRATIVE: CASE EVENT DATE: 20250605
